FAERS Safety Report 15338088 (Version 2)
Quarter: 2018Q3

REPORT INFORMATION
  Report Type: Spontaneous
  Country: US (occurrence: US)
  Receive Date: 20180831
  Receipt Date: 20180920
  Transmission Date: 20181010
  Serious: Yes (Other)
  Sender: FDA-Public Use
  Company Number: US-ROCHE-2174008

PATIENT
  Age: 90 Year
  Sex: Male
  Weight: 69.01 kg

DRUGS (5)
  1. EYLEA [Concomitant]
     Active Substance: AFLIBERCEPT
     Dosage: ONGOING: NO
     Route: 065
     Dates: start: 2018
  2. ZIOPTAN [Concomitant]
     Active Substance: TAFLUPROST
     Dosage: ONGOING: YES
     Route: 065
  3. LUCENTIS [Suspect]
     Active Substance: RANIBIZUMAB
     Indication: NEOVASCULAR AGE-RELATED MACULAR DEGENERATION
     Route: 065
  4. LUCENTIS [Suspect]
     Active Substance: RANIBIZUMAB
     Dosage: BOTH EYES; ONGOING: UNKNOWN
     Route: 065
     Dates: start: 201710
  5. TIMOPTIC [Concomitant]
     Active Substance: TIMOLOL MALEATE
     Indication: GLAUCOMA
     Dosage: 2 DROPS BOTH EYES ;ONGOING: YES
     Route: 031

REACTIONS (9)
  - Dry age-related macular degeneration [Unknown]
  - Visual acuity reduced [Unknown]
  - Body height decreased [Unknown]
  - Inflammation [Unknown]
  - Visual impairment [Unknown]
  - Panic reaction [Not Recovered/Not Resolved]
  - Infection [Unknown]
  - Lacrimation increased [Unknown]
  - Metamorphopsia [Unknown]

NARRATIVE: CASE EVENT DATE: 201710
